FAERS Safety Report 19909734 (Version 1)
Quarter: 2021Q4

REPORT INFORMATION
  Report Type: Spontaneous
  Country: US (occurrence: US)
  Receive Date: 20211002
  Receipt Date: 20211002
  Transmission Date: 20220303
  Serious: No
  Sender: FDA-Public Use
  Company Number: US-CELGENE-USA-20210906260

PATIENT
  Age: 60 Year
  Sex: Female

DRUGS (1)
  1. ZEPOSIA [Suspect]
     Active Substance: OZANIMOD HYDROCHLORIDE
     Indication: Multiple sclerosis
     Dosage: STARTER KIT
     Route: 048
     Dates: start: 20210914

REACTIONS (2)
  - Sleep disorder [Recovered/Resolved]
  - Tremor [Recovered/Resolved]

NARRATIVE: CASE EVENT DATE: 20210914
